FAERS Safety Report 10802297 (Version 2)
Quarter: 2015Q2

REPORT INFORMATION
  Report Type: Report from Study
  Country: GB (occurrence: GB)
  Receive Date: 20150217
  Receipt Date: 20150504
  Transmission Date: 20150821
  Serious: Yes (Hospitalization, Other)
  Sender: FDA-Public Use
  Company Number: PHFR2015GB001340

PATIENT
  Sex: Male

DRUGS (1)
  1. SANDOSTATIN LAR DEPOT [Suspect]
     Active Substance: OCTREOTIDE ACETATE
     Indication: CHRONIC LYMPHOCYTIC LEUKAEMIA
     Dosage: 30 MG, UNK
     Route: 030
     Dates: start: 20140718

REACTIONS (7)
  - Neoplasm [Unknown]
  - Confusional state [Unknown]
  - Off label use [Unknown]
  - Inadequate diet [Unknown]
  - Hepatic infection [Unknown]
  - Obstruction [Unknown]
  - Jaundice [Unknown]
